FAERS Safety Report 18269521 (Version 1)
Quarter: 2020Q3

REPORT INFORMATION
  Report Type: Spontaneous
  Country: DK (occurrence: DK)
  Receive Date: 20200916
  Receipt Date: 20200916
  Transmission Date: 20201103
  Serious: Yes (Other)
  Sender: FDA-Public Use
  Company Number: DK-AUROBINDO-AUR-APL-2013-05473

PATIENT
  Age: 41 Year
  Sex: Female

DRUGS (11)
  1. MIRTAZAPINE. [Interacting]
     Active Substance: MIRTAZAPINE
     Indication: PRODUCT USED FOR UNKNOWN INDICATION
     Dosage: UNK
     Route: 016
  2. FLUCONAZOLE. [Interacting]
     Active Substance: FLUCONAZOLE
     Indication: ORAL CANDIDIASIS
  3. FLUCONAZOLE. [Suspect]
     Active Substance: FLUCONAZOLE
     Indication: ANTIFUNGAL PROPHYLAXIS
     Dosage: 100 MILLIGRAM, ONCE A DAY
     Route: 065
  4. ETOPOSIDE. [Interacting]
     Active Substance: ETOPOSIDE
     Dosage: UNK
     Route: 065
  5. ETOPOSIDE. [Interacting]
     Active Substance: ETOPOSIDE
     Indication: EWING^S SARCOMA
     Dosage: 900 MILLIGRAM, (OVER 9 DAYS)
     Route: 065
  6. VINCRISTINE [Interacting]
     Active Substance: VINCRISTINE
     Indication: EWING^S SARCOMA
     Dosage: 2 MILLIGRAM, CYCLICAL, (SINGLE DOSE)
     Route: 065
  7. ETOPOSIDE. [Interacting]
     Active Substance: ETOPOSIDE
     Dosage: 300 MILLIGRAM, 3 TIMES A DAY
     Route: 065
  8. DOXORUBICIN HYDROCHLORIDE. [Suspect]
     Active Substance: DOXORUBICIN HYDROCHLORIDE
     Indication: EWING^S SARCOMA
     Dosage: 40 MILLIGRAM
     Route: 065
  9. IFOSFAMIDE. [Interacting]
     Active Substance: IFOSFAMIDE
     Indication: EWING^S SARCOMA
     Dosage: 6 GRAM, OVER 9 DAYS
     Route: 065
  10. IFOSFAMIDE. [Interacting]
     Active Substance: IFOSFAMIDE
     Dosage: UNK
     Route: 065
  11. PREDNISOLONE. [Interacting]
     Active Substance: PREDNISOLONE
     Indication: EWING^S SARCOMA
     Dosage: UNK
     Route: 065

REACTIONS (5)
  - Motor dysfunction [Recovering/Resolving]
  - Drug interaction [Unknown]
  - Paraesthesia [Recovering/Resolving]
  - Drug level increased [Unknown]
  - Neurotoxicity [Recovering/Resolving]
